FAERS Safety Report 5392268-2 (Version None)
Quarter: 2007Q3

REPORT INFORMATION
  Report Type: 
  Country: None (occurrence: None)
  Receive Date: 20070720
  Receipt Date: 20070709
  Transmission Date: 20080115
  Serious: Yes (Other)
  Sender: FDA-Public Use
  Company Number: GB-ASTRAZENECA-2007GB01198

PATIENT
  Sex: Female

DRUGS (1)
  1. NEXIUM [Suspect]
     Route: 065
     Dates: end: 20070601

REACTIONS (4)
  - ASTHMA [None]
  - DIAPHRAGMATIC DISORDER [None]
  - UPPER RESPIRATORY TRACT INFLAMMATION [None]
  - WHEEZING [None]
